FAERS Safety Report 8258843-2 (Version None)
Quarter: 2012Q1

REPORT INFORMATION
  Report Type: 
  Country: None (occurrence: None)
  Receive Date: 20120322
  Receipt Date: 20120224
  Transmission Date: 20120608
  Serious: Yes (Hospitalization)
  Sender: FDA-Public Use
  Company Number: UTC-014565

PATIENT
  Age: 43 Year
  Sex: Male
  Weight: 70.5 kg

DRUGS (1)
  1. TYVASO [Suspect]
     Indication: PULMONARY ARTERIAL HYPERTENSION
     Dosage: 72 MCG (24 MCG,3 IN 1 D),INHALATION
     Route: 055
     Dates: start: 20100914

REACTIONS (3)
  - RENAL FAILURE [None]
  - PULMONARY ARTERIAL HYPERTENSION [None]
  - DYSPNOEA [None]
